FAERS Safety Report 24149790 (Version 1)
Quarter: 2024Q3

REPORT INFORMATION
  Report Type: Spontaneous
  Country: DE (occurrence: DE)
  Receive Date: 20240730
  Receipt Date: 20240730
  Transmission Date: 20241017
  Serious: No
  Sender: ALKEM
  Company Number: None

PATIENT
  Age: 79 Year
  Sex: Male
  Weight: 80 kg

DRUGS (5)
  1. CEFUROXIME AXETIL [Suspect]
     Active Substance: CEFUROXIME AXETIL
     Indication: Squamous cell carcinoma
     Dosage: UNK (TABLET)
     Route: 048
     Dates: start: 20230720, end: 20230724
  2. Amlodipin - 1 A Pharma 5 Mg Tabletten N [Concomitant]
     Indication: Product used for unknown indication
     Dosage: UNK (TABLET)
     Route: 065
  3. Candesartan Abz 8 Mg Tabletten [Concomitant]
     Indication: Product used for unknown indication
     Dosage: UNK (TABLET)
     Route: 065
  4. Candesartan Stada 16 Mg Tabletten [Concomitant]
     Indication: Product used for unknown indication
     Dosage: UNK (TABLET)
     Route: 065
  5. Febuxostat - 1 A Pharma 80 Mg Filmtabletten [Concomitant]
     Indication: Product used for unknown indication
     Dosage: UNK (FILM-COATED TABLET)
     Route: 065

REACTIONS (1)
  - Tendon pain [Not Recovered/Not Resolved]

NARRATIVE: CASE EVENT DATE: 20230721
